FAERS Safety Report 6988558-X (Version None)
Quarter: 2010Q3

REPORT INFORMATION
  Report Type: 
  Country: None (occurrence: None)
  Receive Date: 20100916
  Receipt Date: 20100915
  Transmission Date: 20110219
  Serious: Yes (Life-Threatening)
  Sender: FDA-Public Use
  Company Number: JP-BAYER-201013540BYL

PATIENT
  Age: 8 Month
  Sex: Male

DRUGS (2)
  1. ASPIRIN [Suspect]
     Indication: KAWASAKI'S DISEASE
     Route: 048
  2. IMMUNE GLOBULIN INTRAVENOUS (HUMAN) [Concomitant]
     Indication: KAWASAKI'S DISEASE
     Dosage: 2G/KG
     Route: 042

REACTIONS (1)
  - ACUTE HEPATIC FAILURE [None]
